FAERS Safety Report 9285821 (Version 5)
Quarter: 2015Q1

REPORT INFORMATION
  Report Type: Spontaneous
  Country: FR (occurrence: FR)
  Receive Date: 20130513
  Receipt Date: 20150224
  Transmission Date: 20150721
  Serious: Yes (Death, Life-Threatening, Other)
  Sender: FDA-Public Use
  Company Number: FR-PFIZER INC-2013146322

PATIENT
  Age: 72 Year
  Sex: Male

DRUGS (11)
  1. ARGANOVA [Suspect]
     Active Substance: ARGATROBAN
     Dosage: 0.6 MG/HR
     Route: 041
     Dates: start: 20130404, end: 20130406
  2. AMLOR [Concomitant]
     Active Substance: AMLODIPINE BESYLATE
     Dosage: UNK
     Route: 065
     Dates: start: 20130331
  3. PLAVIX [Concomitant]
     Active Substance: CLOPIDOGREL BISULFATE
     Dosage: UNK
     Route: 065
  4. ARGANOVA [Suspect]
     Active Substance: ARGATROBAN
     Dosage: 0.05 MG/HR
     Route: 041
     Dates: start: 20130408, end: 20130409
  5. ARGANOVA [Suspect]
     Active Substance: ARGATROBAN
     Dosage: 1.8 MG/HR
     Route: 041
     Dates: start: 20130402, end: 20130404
  6. ARGANOVA [Suspect]
     Active Substance: ARGATROBAN
     Dosage: 0.1 MG/HR
     Route: 041
     Dates: start: 20130407, end: 20130407
  7. HEPARIN [Concomitant]
     Active Substance: HEPARIN SODIUM
     Indication: RENAL HAEMORRHAGE
     Dosage: UNK
     Route: 065
  8. ASPEGIC [Concomitant]
     Active Substance: ASPIRIN DL-LYSINE
     Dosage: UNK
     Route: 065
  9. INEXIUM [Concomitant]
     Active Substance: ESOMEPRAZOLE
     Dosage: UNK
     Route: 065
     Dates: start: 201303, end: 20130402
  10. ACUPAN [Concomitant]
     Active Substance: NEFOPAM HYDROCHLORIDE
     Dosage: UNK
     Route: 065
     Dates: start: 201303, end: 20130331
  11. ARGANOVA [Suspect]
     Active Substance: ARGATROBAN
     Indication: HEPARIN-INDUCED THROMBOCYTOPENIA
     Dosage: 2.1 UNK, UNK
     Route: 041
     Dates: start: 20130402, end: 20130402

REACTIONS (2)
  - Hyperbilirubinaemia [Not Recovered/Not Resolved]
  - Bronchial haemorrhage [Fatal]

NARRATIVE: CASE EVENT DATE: 20130404
